FAERS Safety Report 13556617 (Version 1)
Quarter: 2017Q2

REPORT INFORMATION
  Report Type: Spontaneous
  Country: US (occurrence: US)
  Receive Date: 20170517
  Receipt Date: 20170517
  Transmission Date: 20170830
  Serious: No
  Sender: FDA-Public Use
  Company Number: US-SA-2017SA048443

PATIENT
  Age: 68 Year
  Sex: Female

DRUGS (3)
  1. METFORMIN [Concomitant]
     Active Substance: METFORMIN HYDROCHLORIDE
  2. TOUJEO [Suspect]
     Active Substance: INSULIN GLARGINE
     Indication: TYPE 2 DIABETES MELLITUS
     Dosage: DOSE:40 UNIT(S)
     Route: 065
     Dates: start: 2016
  3. SOLOSTAR [Concomitant]
     Active Substance: DEVICE
     Dates: start: 2016

REACTIONS (5)
  - Somnolence [Unknown]
  - Dizziness [Unknown]
  - Hot flush [Unknown]
  - Rash [Unknown]
  - Dyspnoea [Unknown]
